FAERS Safety Report 24581218 (Version 1)
Quarter: 2024Q4

REPORT INFORMATION
  Report Type: Spontaneous
  Country: CN (occurrence: CN)
  Receive Date: 20241105
  Receipt Date: 20241105
  Transmission Date: 20250115
  Serious: Yes (Hospitalization)
  Sender: NOVARTIS
  Company Number: CN-002147023-NVSC2024CN212556

PATIENT
  Age: 60 Year
  Sex: Female

DRUGS (1)
  1. SACUBITRIL\VALSARTAN [Suspect]
     Active Substance: SACUBITRIL\VALSARTAN
     Indication: Arteriosclerosis coronary artery
     Dosage: 100 MG, QD
     Route: 048
     Dates: start: 20210914, end: 20241019

REACTIONS (7)
  - Renal impairment [Unknown]
  - Chest discomfort [Unknown]
  - Asthenia [Unknown]
  - Myocardial infarction [Unknown]
  - Hypothyroidism [Unknown]
  - Lacunar infarction [Unknown]
  - Hypertension [Unknown]

NARRATIVE: CASE EVENT DATE: 20241011
